FAERS Safety Report 8997003 (Version 1)
Quarter: 2013Q1

REPORT INFORMATION
  Report Type: Spontaneous
  Country: SG (occurrence: SG)
  Receive Date: 20130104
  Receipt Date: 20130104
  Transmission Date: 20140127
  Serious: Yes (Other)
  Sender: FDA-Public Use
  Company Number: SG-PFIZER INC-2013001692

PATIENT
  Age: 31 Year
  Sex: Male

DRUGS (1)
  1. AMLODIPINE BESILATE [Suspect]

REACTIONS (2)
  - Dermatitis bullous [Recovered/Resolved]
  - Blister [Recovered/Resolved]
